FAERS Safety Report 6089628-3 (Version None)
Quarter: 2009Q1

REPORT INFORMATION
  Report Type: 
  Country: None (occurrence: None)
  Receive Date: 20090219
  Receipt Date: 20090219
  Transmission Date: 20090719
  Serious: Yes (Hospitalization)
  Sender: FDA-Public Use
  Company Number: None

PATIENT
  Sex: Female
  Weight: 57.4 kg

DRUGS (3)
  1. CYTARABINE [Suspect]
     Dosage: 13520 MG
     Dates: end: 20080127
  2. ETOPOSIDE [Suspect]
     Dosage: 2312 MG
     Dates: end: 20080127
  3. C-CSF (FILGRASTIM, AMGEN) [Suspect]
     Dosage: 4200 MCG
     Dates: end: 20090211

REACTIONS (3)
  - BLOOD CULTURE POSITIVE [None]
  - FEBRILE NEUTROPENIA [None]
  - PSEUDOMONAS INFECTION [None]
